FAERS Safety Report 8775972 (Version 3)
Quarter: 2012Q4

REPORT INFORMATION
  Report Type: 
  Country: AU (occurrence: AU)
  Receive Date: 20120910
  Receipt Date: 20120928
  Transmission Date: 20130627
  Serious: Yes (Death, Hospitalization, Other)
  Sender: FDA-Public Use
  Company Number: AU-B.I. PHARMACEUTICALS,INC./RIDGEFIELD-2012-AU-01585AU

PATIENT
  Age: 91 None
  Sex: Male
  Weight: 71 kg

DRUGS (12)
  1. PRADAXA [Suspect]
     Indication: CEREBROVASCULAR ACCIDENT PROPHYLAXIS
     Dosage: 220 mg
     Dates: start: 20110704, end: 20120215
  2. PRADAXA [Suspect]
     Indication: ATRIAL FIBRILLATION
  3. ARANESP [Concomitant]
     Dosage: 100 mcg/0.5 mL
  4. CELESTONE-M [Concomitant]
     Dosage: 0.02 %
  5. CITRACAL + D [Concomitant]
     Dosage: 1.5/ 12 mcg
  6. FRUSEMIDE [Concomitant]
     Dosage: 40 mg
  7. LIPITOR [Concomitant]
     Dosage: 80 mg
  8. MOVICOL [Concomitant]
     Dosage: 13.125g/350.7mg/46.6mg/178.5mg
  9. PANADOL OSTEO [Concomitant]
  10. PARIET [Concomitant]
     Dosage: 10 mg
  11. THYROXIN SODIUM [Concomitant]
     Dosage: 100 mcg
  12. NITROLINGUAL PUMSPRAY [Concomitant]
     Indication: CHEST PAIN
     Dosage: 1-2 puffs of spray sublingual for chest pain
     Route: 060

REACTIONS (15)
  - Death [Fatal]
  - Pneumonia [Unknown]
  - Cardiac failure [Unknown]
  - Anaemia [Unknown]
  - Confusional state [Unknown]
  - Fatigue [Unknown]
  - Muscular weakness [Unknown]
  - Dehydration [Unknown]
  - Weight decreased [Unknown]
  - Temporal arteritis [Unknown]
  - Social problem [Unknown]
  - Arthralgia [Unknown]
  - Myalgia [Unknown]
  - Gait disturbance [Unknown]
  - Lethargy [Unknown]
